FAERS Safety Report 5970853-4 (Version None)
Quarter: 2008Q4

REPORT INFORMATION
  Report Type: 
  Country: None (occurrence: None)
  Receive Date: 20081127
  Receipt Date: 20081119
  Transmission Date: 20090506
  Serious: Yes (Hospitalization)
  Sender: FDA-Public Use
  Company Number: IT-JNJFOC-20070305896

PATIENT
  Sex: Female
  Weight: 72 kg

DRUGS (2)
  1. DOXORUBICIN HCL [Suspect]
     Indication: OVARIAN CANCER
     Route: 042
     Dates: start: 20070129, end: 20070223
  2. VELCADE [Suspect]
     Indication: OVARIAN CANCER
     Route: 065
     Dates: start: 20070129, end: 20070305

REACTIONS (1)
  - ASTHENIA [None]
